FAERS Safety Report 9127987 (Version 1)
Quarter: 2013Q1

REPORT INFORMATION
  Report Type: Spontaneous
  Country: CN (occurrence: CN)
  Receive Date: 20130228
  Receipt Date: 20130228
  Transmission Date: 20140127
  Serious: Yes (Other)
  Sender: FDA-Public Use
  Company Number: CN-SANOFI-AVENTIS-2013SA016115

PATIENT
  Age: 73 Year
  Sex: Male

DRUGS (13)
  1. DIGOXIN [Suspect]
     Indication: CARDIAC DISORDER
     Route: 048
     Dates: start: 20120304, end: 20120316
  2. METHYLPREDNISOLONE [Interacting]
     Indication: ASTHMA
     Route: 065
  3. OMEPRAZOLE [Interacting]
     Indication: PROPHYLAXIS AGAINST GASTROINTESTINAL ULCER
     Route: 041
     Dates: start: 20120217, end: 20120327
  4. FUROSEMIDE [Interacting]
     Indication: CARDIAC DISORDER
     Route: 048
     Dates: start: 20120302, end: 20120327
  5. SPIRONOLACTONE [Interacting]
     Indication: CARDIAC DISORDER
     Route: 048
     Dates: start: 20120302, end: 20120327
  6. NIFEDIPINE [Interacting]
     Indication: PRODUCT USED FOR UNKNOWN INDICATION
     Route: 048
     Dates: start: 20120314, end: 20120327
  7. GATIFLOXACIN [Interacting]
     Indication: INFECTION
     Route: 041
     Dates: start: 20120313, end: 20120316
  8. DESLANOSIDE [Interacting]
     Indication: CARDIAC DISORDER
     Route: 065
     Dates: start: 20120309, end: 20120316
  9. AZTREONAM [Concomitant]
  10. BROMHEXINE [Concomitant]
     Indication: INCREASED UPPER AIRWAY SECRETION
  11. GLYCYRRHIZIC ACID, AMMONIUM SALT [Concomitant]
     Indication: PROPHYLAXIS
  12. ISOSORBIDE MONONITRATE [Concomitant]
     Indication: CARDIAC DISORDER
  13. POTASSIUM [Concomitant]
     Route: 048

REACTIONS (7)
  - Chest discomfort [Recovered/Resolved]
  - Drug level increased [Recovered/Resolved]
  - Drug interaction [Unknown]
  - Condition aggravated [Unknown]
  - Asthma [Recovered/Resolved]
  - Nausea [Recovered/Resolved]
  - Vomiting [Recovered/Resolved]
